FAERS Safety Report 20575842 (Version 1)
Quarter: 2022Q1

REPORT INFORMATION
  Report Type: Other
  Country: US (occurrence: None)
  Receive Date: 20220310
  Receipt Date: 20220310
  Transmission Date: 20220423
  Serious: Yes (Hospitalization)
  Sender: FDA-Public Use
  Company Number: US-ROCHE-3038023

PATIENT
  Sex: Female

DRUGS (1)
  1. OCREVUS [Suspect]
     Active Substance: OCRELIZUMAB
     Indication: Primary progressive multiple sclerosis
     Dosage: ONGOING : YES
     Route: 065
     Dates: start: 2018

REACTIONS (3)
  - Sepsis [Recovered/Resolved]
  - Pulmonary mass [Not Recovered/Not Resolved]
  - Tracheal mass [Not Recovered/Not Resolved]
